FAERS Safety Report 4390020-8 (Version None)
Quarter: 2004Q2

REPORT INFORMATION
  Report Type: 
  Country: None (occurrence: None)
  Receive Date: 20040630
  Receipt Date: 20040616
  Transmission Date: 20050107
  Serious: Yes (Hospitalization)
  Sender: FDA-Public Use
  Company Number: 2004219830GB

PATIENT
  Age: 82 Year
  Sex: Female

DRUGS (3)
  1. BEXTRA [Suspect]
     Dosage: 40 MG, QD, ORAL
     Route: 048
     Dates: start: 20040525, end: 20040602
  2. LISINOPRIL [Concomitant]
  3. BENDROFLUAZIDE [Concomitant]

REACTIONS (2)
  - STEVENS-JOHNSON SYNDROME [None]
  - TOXIC SKIN ERUPTION [None]
